FAERS Safety Report 15295806 (Version 2)
Quarter: 2018Q4

REPORT INFORMATION
  Report Type: Spontaneous
  Country: US (occurrence: US)
  Receive Date: 20180820
  Receipt Date: 20181126
  Transmission Date: 20190204
  Serious: Yes (Hospitalization)
  Sender: FDA-Public Use
  Company Number: US-JNJFOC-20180811228

PATIENT
  Age: 34 Year
  Sex: Female

DRUGS (1)
  1. XARELTO [Suspect]
     Active Substance: RIVAROXABAN
     Indication: DEEP VEIN THROMBOSIS
     Dosage: 15 AND 20MG
     Route: 048
     Dates: start: 20160810, end: 20160816

REACTIONS (2)
  - Peritoneal haemorrhage [Recovering/Resolving]
  - Arterial haemorrhage [Recovering/Resolving]

NARRATIVE: CASE EVENT DATE: 20160816
